FAERS Safety Report 11716646 (Version 2)
Quarter: 2015Q4

REPORT INFORMATION
  Report Type: Spontaneous
  Country: US (occurrence: US)
  Receive Date: 20151104
  Receipt Date: 20151110
  Transmission Date: 20160304
  Serious: No
  Sender: FDA-Public Use
  Company Number: US-ELI_LILLY_AND_COMPANY-US201106004284

PATIENT
  Age: 68 Year
  Sex: Female

DRUGS (4)
  1. FORTEO [Suspect]
     Active Substance: TERIPARATIDE
     Indication: OSTEOPOROSIS
     Dosage: 20 UG, QD
     Dates: start: 201106
  2. FORTEO [Suspect]
     Active Substance: TERIPARATIDE
     Dosage: 20 UG, QD
  3. ANALGESICS [Concomitant]
     Active Substance: UNSPECIFIED INGREDIENT
     Indication: PAIN
  4. FORTEO [Suspect]
     Active Substance: TERIPARATIDE
     Dosage: 20 UG, QD

REACTIONS (21)
  - General physical health deterioration [Unknown]
  - Influenza like illness [Unknown]
  - Somnolence [Unknown]
  - Crepitations [Unknown]
  - Injection site erythema [Unknown]
  - Nausea [Not Recovered/Not Resolved]
  - Blood pressure decreased [Unknown]
  - Hypotension [Unknown]
  - Back pain [Recovering/Resolving]
  - Spinal fracture [Unknown]
  - Fluid intake reduced [Unknown]
  - Malaise [Not Recovered/Not Resolved]
  - Pain in extremity [Recovering/Resolving]
  - Night sweats [Unknown]
  - Malaise [Unknown]
  - Hyperhidrosis [Unknown]
  - Osteoporosis [Unknown]
  - Hypophagia [Unknown]
  - Hypokinesia [Unknown]
  - Dizziness [Not Recovered/Not Resolved]
  - Arthralgia [Recovering/Resolving]

NARRATIVE: CASE EVENT DATE: 20110612
